FAERS Safety Report 5867071-7 (Version None)
Quarter: 2008Q3

REPORT INFORMATION
  Report Type: 
  Country: None (occurrence: None)
  Receive Date: 20080902
  Receipt Date: 20080826
  Transmission Date: 20090109
  Serious: Yes (Other)
  Sender: FDA-Public Use
  Company Number: B0534421A

PATIENT
  Age: 64 Year
  Sex: Male
  Weight: 63.5 kg

DRUGS (14)
  1. BECLOMETHASONE DIPROPIONATE [Suspect]
     Indication: ASTHMA
     Route: 055
     Dates: start: 20080728, end: 20080810
  2. ASPIRIN [Concomitant]
  3. FELODIPINE [Concomitant]
  4. SIMVASTATIN [Concomitant]
  5. FERROUS SULFATE TAB [Concomitant]
  6. MIRTAZAPINE [Concomitant]
  7. PANTOPRAZOLE [Concomitant]
  8. TAMSULOSIN HCL [Concomitant]
  9. THIAMINE HCL [Concomitant]
  10. THEOPHYLLINE [Concomitant]
  11. VITAMIN B COMPLEX CAP [Concomitant]
  12. ZOPICLONE [Concomitant]
  13. SALBUTAMOL [Concomitant]
  14. ACETAMINOPHEN [Concomitant]

REACTIONS (1)
  - INCREASED TENDENCY TO BRUISE [None]
